FAERS Safety Report 10305592 (Version 1)
Quarter: 2014Q3

REPORT INFORMATION
  Report Type: Spontaneous
  Country: ZA (occurrence: ZA)
  Receive Date: 20140715
  Receipt Date: 20140715
  Transmission Date: 20150326
  Serious: Yes (Other)
  Sender: FDA-Public Use
  Company Number: ZA-ROCHE-1435254

PATIENT
  Sex: Male

DRUGS (1)
  1. XELODA [Suspect]
     Active Substance: CAPECITABINE
     Indication: PRODUCT USED FOR UNKNOWN INDICATION
     Dosage: 1000MG/SQUAREMETRE BODY SURFACE AREA TWICE PER DAY
     Route: 065

REACTIONS (2)
  - Toe amputation [Recovered/Resolved]
  - Impaired healing [Recovered/Resolved]
